FAERS Safety Report 6912729-1 (Version None)
Quarter: 2010Q3

REPORT INFORMATION
  Report Type: 
  Country: None (occurrence: None)
  Receive Date: 20100806
  Receipt Date: 20081021
  Transmission Date: 20110219
  Serious: No
  Sender: FDA-Public Use
  Company Number: US-PFIZER INC-2008088608

PATIENT
  Sex: Female
  Weight: 83.6 kg

DRUGS (5)
  1. DETROL LA [Suspect]
     Indication: INCONTINENCE
     Route: 048
     Dates: start: 20081001, end: 20081017
  2. ALBUTEROL [Concomitant]
  3. SPIRIVA [Concomitant]
  4. ADVAIR DISKUS 100/50 [Concomitant]
  5. CYMBALTA [Concomitant]

REACTIONS (2)
  - DIARRHOEA [None]
  - URTICARIA [None]
